FAERS Safety Report 7871413-0 (Version None)
Quarter: 2011Q4

REPORT INFORMATION
  Report Type: 
  Country: None (occurrence: None)
  Receive Date: 20111029
  Receipt Date: 20110302
  Transmission Date: 20120403
  Serious: No
  Sender: FDA-Public Use
  Company Number: US-AMGEN-USASP2011011858

PATIENT

DRUGS (3)
  1. ENBREL [Suspect]
  2. ENBREL [Suspect]
     Indication: PSORIASIS
     Dosage: 50 MG, QWK
     Dates: start: 20101101
  3. ENBREL [Suspect]

REACTIONS (2)
  - MENORRHAGIA [None]
  - MENSTRUAL DISORDER [None]
